FAERS Safety Report 7610548-4 (Version None)
Quarter: 2011Q3

REPORT INFORMATION
  Report Type: 
  Country: None (occurrence: None)
  Receive Date: 20110715
  Receipt Date: 20110706
  Transmission Date: 20111222
  Serious: Yes (Other)
  Sender: FDA-Public Use
  Company Number: JP-ELI_LILLY_AND_COMPANY-JP201107002516

PATIENT
  Age: 47 Year
  Sex: Female

DRUGS (1)
  1. GEMZAR [Suspect]
     Indication: PANCREATIC CARCINOMA NON-RESECTABLE
     Dosage: 800 MG/M2, OTHER
     Route: 042

REACTIONS (1)
  - JAUNDICE CHOLESTATIC [None]
